FAERS Safety Report 5789403-0 (Version None)
Quarter: 2008Q2

REPORT INFORMATION
  Report Type: 
  Country: None (occurrence: None)
  Receive Date: 20080626
  Receipt Date: 20080612
  Transmission Date: 20081010
  Serious: Yes (Death)
  Sender: FDA-Public Use
  Company Number: DE-AVENTIS-200811690DE

PATIENT
  Sex: Male

DRUGS (2)
  1. LASIX [Suspect]
     Dosage: DOSE QUANTITY: 2
     Route: 042
     Dates: start: 20080501
  2. LASIX [Suspect]
     Dosage: DOSE QUANTITY: 2
     Route: 042
     Dates: start: 20080501

REACTIONS (1)
  - DEATH [None]
